FAERS Safety Report 9654374 (Version 1)
Quarter: 2013Q4

REPORT INFORMATION
  Report Type: Spontaneous
  Country: US (occurrence: None)
  Receive Date: 20131018
  Receipt Date: 20131018
  Transmission Date: 20140711
  Serious: No
  Sender: FDA-Public Use
  Company Number: US-145483

PATIENT
  Age: 5 Year
  Sex: Female
  Weight: 17 kg

DRUGS (1)
  1. VARIZIG [Suspect]
     Indication: ANTIVIRAL PROPHYLAXIS
     Dosage: 250 IU TOTAL INTRAVENOUS
     Route: 042
     Dates: start: 20130901, end: 20130901

REACTIONS (3)
  - Medication error [None]
  - Product reconstitution issue [None]
  - Incorrect route of drug administration [None]
